FAERS Safety Report 8765637 (Version 2)
Quarter: 2013Q1

REPORT INFORMATION
  Report Type: Spontaneous
  Country: BR (occurrence: BR)
  Receive Date: 20120831
  Receipt Date: 20130211
  Transmission Date: 20140127
  Serious: Yes (Other)
  Sender: FDA-Public Use
  Company Number: PHHY2012BR074644

PATIENT
  Sex: Male

DRUGS (3)
  1. DIOVAN AMLO FIX [Suspect]
     Indication: HYPERTENSION
     Dosage: 1 DF (160/5 MG), DAILY
     Route: 048
  2. DIOVAN AMLO FIX [Suspect]
     Dosage: 1 DF (320/5 MG), DAILY
     Route: 048
  3. MODURETIC ^MSD^ [Concomitant]
     Indication: BLOOD PRESSURE ABNORMAL
     Dosage: 1 DF (25/2.5 MG), DAILY
     Route: 048

REACTIONS (2)
  - Lymphoma [Recovered/Resolved]
  - Blood pressure inadequately controlled [Recovered/Resolved]
